FAERS Safety Report 9183888 (Version 1)
Quarter: 2013Q1

REPORT INFORMATION
  Report Type: Spontaneous
  Country: US (occurrence: US)
  Receive Date: 20130322
  Receipt Date: 20130322
  Transmission Date: 20140127
  Serious: No
  Sender: FDA-Public Use
  Company Number: US-BRISTOL-MYERS SQUIBB COMPANY-16656407

PATIENT
  Age: 60 Year
  Sex: Female

DRUGS (4)
  1. ERBITUX [Suspect]
     Indication: COLON CANCER
     Dates: end: 201204
  2. IRINOTECAN [Concomitant]
  3. LEUCOVORIN [Concomitant]
  4. 5-FLUOROURACIL [Concomitant]

REACTIONS (4)
  - Alopecia [Unknown]
  - Rash [Unknown]
  - Acne [Unknown]
  - Pruritus [Unknown]
